FAERS Safety Report 19961156 (Version 2)
Quarter: 2022Q1

REPORT INFORMATION
  Report Type: Spontaneous
  Country: US (occurrence: US)
  Receive Date: 20211016
  Receipt Date: 20220109
  Transmission Date: 20220424
  Serious: No
  Sender: FDA-Public Use
  Company Number: US-SA-SAC20211012000056

PATIENT
  Age: 63 Year
  Sex: Female

DRUGS (1)
  1. KEVZARA [Suspect]
     Active Substance: SARILUMAB
     Indication: Rheumatoid arthritis
     Dosage: 200 MG, QOW
     Route: 048
     Dates: start: 20210723

REACTIONS (3)
  - Injection site swelling [Recovered/Resolved]
  - Incorrect route of product administration [Unknown]
  - Injection site swelling [Unknown]

NARRATIVE: CASE EVENT DATE: 20210723
